FAERS Safety Report 15934680 (Version 3)
Quarter: 2019Q1

REPORT INFORMATION
  Report Type: Report from Study
  Country: US (occurrence: US)
  Receive Date: 20190207
  Receipt Date: 20190329
  Transmission Date: 20190417
  Serious: No
  Sender: FDA-Public Use
  Company Number: PHEH2019US005379

PATIENT
  Sex: Female

DRUGS (1)
  1. GILENYA [Suspect]
     Active Substance: FINGOLIMOD HYDROCHLORIDE
     Indication: MULTIPLE SCLEROSIS
     Dosage: 0.5 MG, QD
     Route: 048
     Dates: start: 2011

REACTIONS (8)
  - Muscle spasms [Unknown]
  - Anxiety [Unknown]
  - Nervousness [Unknown]
  - Hypoaesthesia [Unknown]
  - Fear [Unknown]
  - Insomnia [Unknown]
  - Myalgia [Unknown]
  - Paraesthesia [Unknown]
